FAERS Safety Report 22294453 (Version 1)
Quarter: 2023Q2

REPORT INFORMATION
  Report Type: Spontaneous
  Country: US (occurrence: US)
  Receive Date: 20230508
  Receipt Date: 20230508
  Transmission Date: 20230721
  Serious: Yes (Other)
  Sender: FDA-Public Use
  Company Number: US-ASTELLAS-2022US022999

PATIENT
  Age: 77 Year
  Sex: Male

DRUGS (15)
  1. LEXISCAN [Interacting]
     Active Substance: REGADENOSON
     Indication: Scan myocardial perfusion
     Dosage: 0.4 MG, UNKNOWN FREQ. (ADMINISTERED FOR APPROX.10-15 SECONDS FOLLOWED BY A 10 CC SALINE FLUSH)
     Route: 042
     Dates: start: 20220623, end: 20220623
  2. LEXISCAN [Interacting]
     Active Substance: REGADENOSON
     Indication: Scan myocardial perfusion
     Dosage: 0.4 MG, UNKNOWN FREQ. (ADMINISTERED FOR APPROX.10-15 SECONDS FOLLOWED BY A 10 CC SALINE FLUSH)
     Route: 042
     Dates: start: 20220623, end: 20220623
  3. LEXISCAN [Interacting]
     Active Substance: REGADENOSON
     Indication: Scan myocardial perfusion
     Dosage: 0.4 MG, UNKNOWN FREQ. (ADMINISTERED FOR APPROX.10-15 SECONDS FOLLOWED BY A 10 CC SALINE FLUSH)
     Route: 042
     Dates: start: 20220623, end: 20220623
  4. LEXISCAN [Interacting]
     Active Substance: REGADENOSON
     Indication: Scan myocardial perfusion
     Dosage: 0.4 MG, UNKNOWN FREQ. (ADMINISTERED FOR APPROX.10-15 SECONDS FOLLOWED BY A 10 CC SALINE FLUSH)
     Route: 042
     Dates: start: 20220623, end: 20220623
  5. TRELEGY ELLIPTA [Interacting]
     Active Substance: FLUTICASONE FUROATE\UMECLIDINIUM BROMIDE\VILANTEROL TRIFENATATE
     Indication: Product used for unknown indication
     Dosage: 1 PUFF, ONCE DAILY (100-62.5-25 MCG DSDV)
     Route: 050
  6. CAFFEINE [Concomitant]
     Active Substance: CAFFEINE
     Indication: Product used for unknown indication
     Dosage: 60 MG, UNKNOWN FREQ. (ADMINISTERED AT 3 MINUTES POST INITIATION OF LEXISCAN INFUSION)
     Route: 042
  7. LIPITOR [Concomitant]
     Active Substance: ATORVASTATIN CALCIUM
     Indication: Product used for unknown indication
     Route: 048
  8. ASPIRIN [Concomitant]
     Active Substance: ASPIRIN
     Indication: Product used for unknown indication
     Dosage: 81 MG, ONCE DAILY (ENTERIC COATED)
     Route: 048
  9. ALBUTEROL [Concomitant]
     Active Substance: ALBUTEROL
     Indication: Wheezing
     Dosage: 2 PUFFS, OTHER (EVERY 6 HOURS AS NEEDED) (90 MCG/ACTUATION INHALER)
     Route: 050
  10. ALBUTEROL [Concomitant]
     Active Substance: ALBUTEROL
     Indication: Dyspnoea
  11. PERCOCET [Concomitant]
     Active Substance: ACETAMINOPHEN\OXYCODONE HYDROCHLORIDE
     Indication: Pain
     Dosage: 1 DF, OTHER (EVERY 6 HOURS AS NEEDED) (5-325)
     Route: 048
  12. DUONEB [Concomitant]
     Active Substance: ALBUTEROL SULFATE\IPRATROPIUM BROMIDE
     Indication: Product used for unknown indication
     Dosage: 1 DF, OTHER (1 VIAL IN NEBULIZER  EVERY 4 HOURS AS NEEDED) (0.5-2.5 MG/3 ML)
     Route: 065
  13. NORVASC [Concomitant]
     Active Substance: AMLODIPINE BESYLATE
     Indication: Product used for unknown indication
     Route: 048
  14. COREG [Concomitant]
     Active Substance: CARVEDILOL
     Indication: Product used for unknown indication
     Route: 048
  15. VITAMINS [Concomitant]
     Active Substance: VITAMINS
     Indication: Product used for unknown indication
     Route: 048

REACTIONS (3)
  - Atrioventricular block [Recovered/Resolved]
  - Drug interaction [Unknown]
  - Incorrect product administration duration [Unknown]

NARRATIVE: CASE EVENT DATE: 20220623
